FAERS Safety Report 6587955-4 (Version None)
Quarter: 2010Q1

REPORT INFORMATION
  Report Type: 
  Country: None (occurrence: None)
  Receive Date: 20100217
  Receipt Date: 20100217
  Transmission Date: 20100710
  Serious: Yes (Life-Threatening, Hospitalization)
  Sender: FDA-Public Use
  Company Number: None

PATIENT
  Age: 76 Year

DRUGS (1)
  1. GLEEVEC [Suspect]
     Indication: CHRONIC LEUKAEMIA
     Dosage: 200MG DAILY PO
     Route: 048
     Dates: start: 20100210, end: 20100214

REACTIONS (2)
  - HAEMORRHAGE [None]
  - RENAL FAILURE [None]
